FAERS Safety Report 21585768 (Version 2)
Quarter: 2022Q4

REPORT INFORMATION
  Report Type: Report from Study
  Country: US (occurrence: US)
  Receive Date: 20221111
  Receipt Date: 20221116
  Transmission Date: 20230112
  Serious: Yes (Life-Threatening, Other)
  Sender: FDA-Public Use
  Company Number: US-PFIZER INC-PV202200094351

PATIENT
  Age: 72 Year
  Sex: Female
  Weight: 109 kg

DRUGS (16)
  1. GEMCITABINE HYDROCHLORIDE [Suspect]
     Active Substance: GEMCITABINE HYDROCHLORIDE
     Dosage: 2200 MG DAY 1, DAY 8 OF EACH 21 DAY CYCLE
     Route: 042
     Dates: start: 20220309
  2. CISPLATIN [Suspect]
     Active Substance: CISPLATIN
     Indication: Cholangiocarcinoma
     Dosage: 28 MG DAY 1, DAY 8 OF EACH 21 DAY CYCLE
     Route: 042
     Dates: start: 20220309
  3. ELIQUIS [Concomitant]
     Active Substance: APIXABAN
     Dosage: UNK
     Dates: start: 20220513, end: 20220612
  4. ASPIRIN [Concomitant]
     Active Substance: ASPIRIN
     Dosage: UNK
     Dates: start: 20220603, end: 20220622
  5. ZETIA [Concomitant]
     Active Substance: EZETIMIBE
     Dosage: UNK
     Dates: start: 20211101
  6. ATIVAN [Concomitant]
     Active Substance: LORAZEPAM
     Dosage: UNK
     Dates: start: 20220309, end: 20220906
  7. COZAAR [Concomitant]
     Active Substance: LOSARTAN POTASSIUM
     Dosage: UNK
     Dates: start: 20220504
  8. MAGNESIUM CHLORIDE [Concomitant]
     Active Substance: MAGNESIUM CHLORIDE
     Dosage: UNK
     Dates: start: 20220606, end: 20220620
  9. MAGNESIUM OXIDE [Concomitant]
     Active Substance: MAGNESIUM OXIDE
     Dosage: UNK
     Dates: start: 20220603, end: 20220617
  10. LOPRESSOR [Concomitant]
     Active Substance: METOPROLOL TARTRATE
     Dosage: UNK
     Dates: start: 20211101
  11. NITROSTAT [Concomitant]
     Active Substance: NITROGLYCERIN
     Dosage: UNK
     Dates: start: 20220203
  12. ZOFRAN [Concomitant]
     Active Substance: ONDANSETRON HYDROCHLORIDE
     Dosage: UNK
     Dates: start: 20220309
  13. COMPAZINE [Concomitant]
     Active Substance: PROCHLORPERAZINE MALEATE
     Dosage: UNK
     Dates: start: 20220309
  14. CRESTOR [Concomitant]
     Active Substance: ROSUVASTATIN CALCIUM
     Dosage: UNK
     Dates: start: 20211101
  15. DOCUSATE SODIUM\SENNOSIDES [Concomitant]
     Active Substance: DOCUSATE SODIUM\SENNOSIDES
     Dosage: UNK
     Dates: start: 20220314
  16. SANCTURA XR [Concomitant]
     Active Substance: TROSPIUM CHLORIDE
     Dosage: UNK
     Dates: start: 20220104

REACTIONS (1)
  - Neutrophil count decreased [Recovered/Resolved]

NARRATIVE: CASE EVENT DATE: 20220606
